FAERS Safety Report 21783653 (Version 1)
Quarter: 2022Q4

REPORT INFORMATION
  Report Type: Other
  Country: US (occurrence: None)
  Receive Date: 20221227
  Receipt Date: 20221227
  Transmission Date: 20230113
  Serious: Yes (Hospitalization, Other)
  Sender: FDA-Public Use
  Company Number: US-ROCHE-3250116

PATIENT
  Age: 67 Year
  Sex: Male
  Weight: 97.156 kg

DRUGS (11)
  1. OCREVUS [Suspect]
     Active Substance: OCRELIZUMAB
     Indication: Relapsing multiple sclerosis
     Dosage: INFUSE 600MG INTRAVENOUSLY EVERY 6 MONTHS?LAST DATE OF TREATMENT: 15/OCT/2021, ANTICIPATED DATE OF T
     Route: 042
     Dates: start: 2021
  2. DALFAMPRIDINE [Concomitant]
     Active Substance: DALFAMPRIDINE
  3. LISINOPRIL [Concomitant]
     Active Substance: LISINOPRIL
  4. BACLOFEN [Concomitant]
     Active Substance: BACLOFEN
  5. CITALOPRAM [Concomitant]
     Active Substance: CITALOPRAM HYDROBROMIDE
  6. DONEPEZIL [Concomitant]
     Active Substance: DONEPEZIL
  7. ASPIRIN [Concomitant]
     Active Substance: ASPIRIN
  8. VITAMIN B12 [Concomitant]
     Active Substance: CYANOCOBALAMIN
  9. VITAMIN D3 [Concomitant]
     Active Substance: CHOLECALCIFEROL
  10. MAGNESIUM [Concomitant]
     Active Substance: MAGNESIUM
  11. TECFIDERA [Concomitant]
     Active Substance: DIMETHYL FUMARATE

REACTIONS (3)
  - COVID-19 [Recovering/Resolving]
  - Disorientation [Recovered/Resolved]
  - Diabetes mellitus [Not Recovered/Not Resolved]

NARRATIVE: CASE EVENT DATE: 20221210
